FAERS Safety Report 5945506-9 (Version None)
Quarter: 2008Q4

REPORT INFORMATION
  Report Type: 
  Country: None (occurrence: None)
  Receive Date: 20081105
  Receipt Date: 20081024
  Transmission Date: 20090506
  Serious: Yes (Hospitalization)
  Sender: FDA-Public Use
  Company Number: GXKR2008IT10207

PATIENT
  Age: 34 Year
  Sex: Male

DRUGS (5)
  1. METHYLPREDNISOLONE [Suspect]
     Indication: GLOMERULONEPHRITIS MEMBRANOUS
     Dosage: 1 G, QD, INTRAVENOUS
     Route: 042
  2. PREDNISONE [Suspect]
     Indication: GLOMERULONEPHRITIS MEMBRANOUS
     Dosage: 75 MG, QD, ORAL
     Route: 048
  3. IRBESARTAN [Concomitant]
  4. NEBIVOLOL HCL [Concomitant]
  5. ACETAMINOPHEN [Concomitant]

REACTIONS (12)
  - BLOOD PRESSURE INCREASED [None]
  - CONCOMITANT DISEASE PROGRESSION [None]
  - HYPERGAMMAGLOBULINAEMIA [None]
  - LUNG INFILTRATION [None]
  - MYCOPLASMA INFECTION [None]
  - NECROTISING RETINITIS [None]
  - NORMOCHROMIC NORMOCYTIC ANAEMIA [None]
  - PAPILLOEDEMA [None]
  - PELIOSIS HEPATIS [None]
  - RASH [None]
  - RETINAL VASCULITIS [None]
  - SECONDARY SYPHILIS [None]
